FAERS Safety Report 7493944-8 (Version None)
Quarter: 2011Q2

REPORT INFORMATION
  Report Type: 
  Country: None (occurrence: None)
  Receive Date: 20110520
  Receipt Date: 20110516
  Transmission Date: 20111010
  Serious: Yes (Other)
  Sender: FDA-Public Use
  Company Number: US-PFIZER INC-2011077418

PATIENT
  Sex: Female
  Weight: 87.5 kg

DRUGS (4)
  1. PREPARATION H [Suspect]
     Dosage: UNK
     Dates: start: 20110301, end: 20110101
  2. ACETYLSALICYLIC ACID [Concomitant]
     Dosage: UNK
  3. DIURETICS [Concomitant]
     Dosage: UNK
  4. BETA BLOCKING AGENTS [Concomitant]
     Dosage: UNK

REACTIONS (1)
  - RECTAL HAEMORRHAGE [None]
